FAERS Safety Report 17426350 (Version 1)
Quarter: 2020Q1

REPORT INFORMATION
  Report Type: Spontaneous
  Country: FR (occurrence: FR)
  Receive Date: 20200218
  Receipt Date: 20200218
  Transmission Date: 20200409
  Serious: Yes (Other)
  Sender: FDA-Public Use
  Company Number: FR-TEVA-2020-FR-1186781

PATIENT
  Age: 51 Year
  Sex: Female

DRUGS (1)
  1. TAMOXIFENE BASE [Suspect]
     Active Substance: TAMOXIFEN
     Indication: BREAST CANCER
     Dosage: 1 DOSAGE FORM
     Route: 048
     Dates: start: 201906, end: 201912

REACTIONS (5)
  - Aphasia [Recovering/Resolving]
  - Anxiety [Recovering/Resolving]
  - Amnestic disorder [Recovering/Resolving]
  - Disturbance in attention [Recovering/Resolving]
  - Affective disorder [Recovering/Resolving]

NARRATIVE: CASE EVENT DATE: 201909
